FAERS Safety Report 5968769-2 (Version None)
Quarter: 2008Q4

REPORT INFORMATION
  Report Type: 
  Country: None (occurrence: None)
  Receive Date: 20081125
  Receipt Date: 20081125
  Transmission Date: 20090506
  Serious: Yes (Hospitalization)
  Sender: FDA-Public Use
  Company Number: None

PATIENT
  Age: 76 Year
  Sex: Male
  Weight: 100 kg

DRUGS (7)
  1. QUETIAPINE FUMARATE [Suspect]
     Indication: POST-TRAUMATIC STRESS DISORDER
     Dosage: 25MG PO QHS  : 12.5MG-50MG PO QHS
     Route: 048
     Dates: start: 20070117, end: 20080520
  2. QUETIAPINE FUMARATE [Suspect]
     Indication: POST-TRAUMATIC STRESS DISORDER
     Dosage: 25MG PO QHS  : 12.5MG-50MG PO QHS
     Route: 048
     Dates: start: 20080520
  3. ASPIRIN [Concomitant]
  4. HYDROCHLOROTHIAZIDE [Concomitant]
  5. LISINOPRIL [Concomitant]
  6. PAROXETINE HCL [Concomitant]
  7. CLONAZEPAM [Concomitant]

REACTIONS (5)
  - CONDITION AGGRAVATED [None]
  - DEPRESSION [None]
  - DRUG INEFFECTIVE [None]
  - SUICIDAL IDEATION [None]
  - TREMOR [None]
